FAERS Safety Report 7158884-2 (Version None)
Quarter: 2010Q4

REPORT INFORMATION
  Report Type: 
  Country: None (occurrence: None)
  Receive Date: 20101214
  Receipt Date: 20101201
  Transmission Date: 20110411
  Serious: Yes (Other)
  Sender: FDA-Public Use
  Company Number: JP-SANOFI-AVENTIS-2010SA009551

PATIENT
  Age: 42 Year
  Sex: Male
  Weight: 60.3 kg

DRUGS (5)
  1. LANTUS [Suspect]
     Indication: HYPERGLYCAEMIA
  2. BENAMBAX [Suspect]
     Route: 041
     Dates: start: 20100112, end: 20100201
  3. PREDONINE [Concomitant]
     Route: 048
     Dates: start: 20100110, end: 20100130
  4. TAKEPRON [Concomitant]
     Indication: GASTRIC ULCER
     Route: 048
     Dates: start: 20100108, end: 20100203
  5. FUNGIZONE [Concomitant]
     Indication: ORAL CANDIDIASIS
     Route: 048
     Dates: start: 20100114

REACTIONS (3)
  - HYPERGLYCAEMIA [None]
  - HYPOGLYCAEMIA [None]
  - RENAL IMPAIRMENT [None]
